FAERS Safety Report 5389796-2 (Version None)
Quarter: 2007Q3

REPORT INFORMATION
  Report Type: 
  Country: None (occurrence: None)
  Receive Date: 20070713
  Receipt Date: 20070702
  Transmission Date: 20080115
  Serious: Yes (Disabling, Other)
  Sender: FDA-Public Use
  Company Number: S07-UKI-01809-01

PATIENT
  Age: 32 Year
  Sex: Female

DRUGS (5)
  1. CIPRALEX (ESCITALOPRAM) [Suspect]
     Dosage: 10 MG QD; PO
     Route: 048
     Dates: start: 20070410, end: 20070420
  2. PROPRANOLOL [Concomitant]
  3. ZOPICLONE [Concomitant]
  4. DIAZEPAM [Concomitant]
  5. CITALOPRAM HYDROBROMIDE [Concomitant]

REACTIONS (10)
  - AGITATION [None]
  - ANXIETY [None]
  - BALANCE DISORDER [None]
  - DYSARTHRIA [None]
  - ELEVATED MOOD [None]
  - HALLUCINATION [None]
  - MUSCLE TWITCHING [None]
  - SELF-INJURIOUS IDEATION [None]
  - SUICIDAL IDEATION [None]
  - SUICIDE ATTEMPT [None]
